FAERS Safety Report 4598285-4 (Version None)
Quarter: 2005Q1

REPORT INFORMATION
  Report Type: 
  Country: None (occurrence: None)
  Receive Date: 20050301
  Receipt Date: 20050301
  Transmission Date: 20050727
  Serious: Yes (Life-Threatening)
  Sender: FDA-Public Use
  Company Number: None

PATIENT
  Sex: Male

DRUGS (12)
  1. LINEZOLID [Suspect]
     Indication: STAPHYLOCOCCAL INFECTION
     Dosage: 600 MG BID ORAL
     Route: 048
     Dates: start: 20041001, end: 20041022
  2. METOLAZONE [Concomitant]
  3. OXYCODONE HCL [Concomitant]
  4. FLUOXETINE [Concomitant]
  5. POTASSIUM CHLORIDE [Concomitant]
  6. RISPERIDONE [Concomitant]
  7. FUROSEMIDE [Concomitant]
  8. METOPROLOL [Concomitant]
  9. SENNA [Concomitant]
  10. COMBIVENT [Concomitant]
  11. DIGOXIN [Concomitant]
  12. CLOPIDOGREL BISULFATE [Concomitant]

REACTIONS (1)
  - THROMBOCYTOPENIA [None]
